FAERS Safety Report 9216887 (Version 1)
Quarter: 2013Q2

REPORT INFORMATION
  Report Type: Spontaneous
  Country: US (occurrence: US)
  Receive Date: 20130408
  Receipt Date: 20130408
  Transmission Date: 20140414
  Serious: Yes (Hospitalization)
  Sender: FDA-Public Use
  Company Number: US-PFIZER INC-2013108750

PATIENT
  Age: 80 Year
  Sex: Female
  Weight: 109.75 kg

DRUGS (6)
  1. LIPITOR [Suspect]
     Dosage: 20 MG, 1X/DAY
     Route: 048
  2. NORVASC [Concomitant]
     Dosage: UNK
  3. LEXAPRO [Concomitant]
     Dosage: UNK
  4. TRICOR [Concomitant]
     Dosage: UNK
  5. HYDRALAZINE [Concomitant]
     Dosage: UNK
  6. SYNTHROID [Concomitant]
     Dosage: UNK

REACTIONS (1)
  - Renal impairment [Recovering/Resolving]
